FAERS Safety Report 25497275 (Version 1)
Quarter: 2025Q3

REPORT INFORMATION
  Report Type: Spontaneous
  Country: EU (occurrence: EU)
  Receive Date: 20250701
  Receipt Date: 20250701
  Transmission Date: 20251021
  Serious: Yes (Hospitalization, Other)
  Sender: NOVO NORDISK
  Company Number: EU-NOVOPROD-1465294

PATIENT
  Age: 59 Year
  Sex: Female

DRUGS (2)
  1. SEMAGLUTIDE [Suspect]
     Active Substance: SEMAGLUTIDE
     Indication: Obesity
  2. WEGOVY [Suspect]
     Active Substance: SEMAGLUTIDE
     Indication: Obesity

REACTIONS (7)
  - Pulmonary embolism [Recovering/Resolving]
  - Deep vein thrombosis [Unknown]
  - Decreased appetite [Unknown]
  - Vomiting [Unknown]
  - Diarrhoea [Unknown]
  - Dyspnoea [Unknown]
  - Off label use [Recovered/Resolved]
